FAERS Safety Report 24255949 (Version 1)
Quarter: 2024Q3

REPORT INFORMATION
  Report Type: Spontaneous
  Country: CN (occurrence: CN)
  Receive Date: 20240827
  Receipt Date: 20240827
  Transmission Date: 20241017
  Serious: Yes (Life-Threatening)
  Sender: PFIZER
  Company Number: CN-PFIZER INC-PV202400110612

PATIENT
  Age: 75 Year
  Sex: Female
  Weight: 47 kg

DRUGS (4)
  1. MEDROL [Suspect]
     Active Substance: METHYLPREDNISOLONE
     Indication: Interstitial lung disease
     Dosage: 20 MG, 1X/DAY
     Route: 048
     Dates: start: 20190508, end: 20190602
  2. MEDROL [Suspect]
     Active Substance: METHYLPREDNISOLONE
     Dosage: 16 MG, 1X/DAY
     Route: 048
     Dates: start: 20190603, end: 20190627
  3. MEDROL [Suspect]
     Active Substance: METHYLPREDNISOLONE
     Dosage: 12 MG, 1X/DAY
     Route: 048
     Dates: start: 20190628, end: 20190712
  4. PREDNISONE ACETATE [Suspect]
     Active Substance: PREDNISONE ACETATE
     Indication: Interstitial lung disease
     Dosage: 10 MG, 3X/DAY
     Route: 048
     Dates: start: 20190405, end: 20190507

REACTIONS (1)
  - Pulmonary embolism [Recovering/Resolving]

NARRATIVE: CASE EVENT DATE: 20190628
